FAERS Safety Report 8903944 (Version 4)
Quarter: 2013Q2

REPORT INFORMATION
  Report Type: Report from Study
  Country: US (occurrence: US)
  Receive Date: 20121112
  Receipt Date: 20130521
  Transmission Date: 20140414
  Serious: Yes (Hospitalization, Other)
  Sender: FDA-Public Use
  Company Number: US-ABBOTT-12P-163-1004275-00

PATIENT
  Age: 62 Year
  Sex: Male

DRUGS (9)
  1. HUMIRA [Suspect]
     Indication: CROHN^S DISEASE
     Route: 058
     Dates: start: 20120817, end: 201209
  2. HUMIRA [Suspect]
     Route: 058
     Dates: start: 201209, end: 20121012
  3. AZATHIOPRINE [Concomitant]
     Indication: CROHN^S DISEASE
  4. BALSALAZIDE DISODIUM [Concomitant]
     Indication: CROHN^S DISEASE
     Dosage: 3 X BID
  5. PAXIL [Concomitant]
     Indication: MUSCLE RELAXANT THERAPY
  6. OMEPRAZOLE [Concomitant]
     Indication: CROHN^S DISEASE
  7. PREDNISONE [Concomitant]
     Indication: CROHN^S DISEASE
  8. PERCOCET [Concomitant]
     Indication: PAIN
     Dosage: DAILY AS NEEDED
  9. PERCOCET [Concomitant]
     Indication: ABDOMINAL DISCOMFORT

REACTIONS (14)
  - Dizziness [Recovered/Resolved]
  - Dizziness [Recovered/Resolved]
  - Fall [Recovering/Resolving]
  - Syncope [Recovered/Resolved]
  - Head injury [Unknown]
  - Haemorrhage [Unknown]
  - Rib fracture [Recovering/Resolving]
  - Fatigue [Recovered/Resolved]
  - Loss of consciousness [Recovered/Resolved]
  - Laceration [Unknown]
  - Cartilage injury [Unknown]
  - Loss of consciousness [Recovered/Resolved]
  - Loss of consciousness [Recovered/Resolved]
  - Musculoskeletal chest pain [Recovered/Resolved]
